FAERS Safety Report 11723357 (Version 2)
Quarter: 2016Q1

REPORT INFORMATION
  Report Type: Spontaneous
  Country: AR (occurrence: AR)
  Receive Date: 20151111
  Receipt Date: 20160122
  Transmission Date: 20160525
  Serious: Yes (Other)
  Sender: FDA-Public Use
  Company Number: AR-BAUSCH-BL-2015-025869

PATIENT

DRUGS (1)
  1. ATROPINE. [Suspect]
     Active Substance: ATROPINE
     Indication: HEART RATE ABNORMAL
     Route: 042

REACTIONS (1)
  - Supraventricular tachyarrhythmia [Recovered/Resolved]
